FAERS Safety Report 20652576 (Version 1)
Quarter: 2022Q1

REPORT INFORMATION
  Report Type: Spontaneous
  Country: US (occurrence: US)
  Receive Date: 20220330
  Receipt Date: 20220330
  Transmission Date: 20220423
  Serious: Yes (Hospitalization, Other)
  Sender: FDA-Public Use
  Company Number: US-BRISTOL-MYERS SQUIBB COMPANY-USA-20220304602

PATIENT
  Age: 62 Year
  Sex: Female
  Weight: 73.94 kg

DRUGS (1)
  1. POMALIDOMIDE [Suspect]
     Active Substance: POMALIDOMIDE
     Indication: Product used for unknown indication
     Dosage: 21 DAYS AND 7 DAYS OFF
     Route: 048
     Dates: start: 20210114

REACTIONS (3)
  - Syncope [Unknown]
  - Infected skin ulcer [Unknown]
  - Oral infection [Unknown]

NARRATIVE: CASE EVENT DATE: 20220307
